FAERS Safety Report 21975722 (Version 3)
Quarter: 2023Q4

REPORT INFORMATION
  Report Type: Other
  Country: CA (occurrence: None)
  Receive Date: 20230210
  Receipt Date: 20231228
  Transmission Date: 20240109
  Serious: Yes (Hospitalization)
  Sender: FDA-Public Use
  Company Number: CA-ROCHE-3212873

PATIENT
  Age: 15 Year
  Sex: Male
  Weight: 98 kg

DRUGS (6)
  1. ACTEMRA [Suspect]
     Active Substance: TOCILIZUMAB
     Indication: Juvenile idiopathic arthritis
     Dosage: DOSE AS PER PRESCRIPTION RECEIVED, NO PIR RECEIVED
     Route: 042
     Dates: start: 20221004, end: 20221004
  2. ACTEMRA [Suspect]
     Active Substance: TOCILIZUMAB
     Indication: Rheumatoid factor positive
     Dosage: TOTAL DOSE OF 700MG SPLIT UP INTO 2 INFUSIONS DUE TO STOCK/AVAILABILITY
     Route: 042
     Dates: start: 20221102, end: 20221104
  3. ACTEMRA [Suspect]
     Active Substance: TOCILIZUMAB
     Route: 042
     Dates: start: 20221130
  4. FOLIC ACID [Concomitant]
     Active Substance: FOLIC ACID
  5. LANSOPRAZOLE [Concomitant]
     Active Substance: LANSOPRAZOLE
  6. METHOTREXATE [Concomitant]
     Active Substance: METHOTREXATE

REACTIONS (3)
  - Non-Hodgkin^s lymphoma [Unknown]
  - Off label use [Unknown]
  - Weight increased [Unknown]

NARRATIVE: CASE EVENT DATE: 20221102
